FAERS Safety Report 18145981 (Version 3)
Quarter: 2021Q1

REPORT INFORMATION
  Report Type: Report from Study
  Country: US (occurrence: US)
  Receive Date: 20200813
  Receipt Date: 20210304
  Transmission Date: 20210419
  Serious: No
  Sender: FDA-Public Use
  Company Number: NVSC2020US221017

PATIENT
  Age: 41 Year
  Sex: Female

DRUGS (3)
  1. PREDNISONE. [Concomitant]
     Active Substance: PREDNISONE
     Indication: PRODUCT USED FOR UNKNOWN INDICATION
     Dosage: UNK
     Route: 065
  2. CORTICOSTEROIDS [Concomitant]
     Active Substance: CORTICOSTEROID NOS
     Indication: PRODUCT USED FOR UNKNOWN INDICATION
     Dosage: UNK
     Route: 065
  3. ILARIS [Suspect]
     Active Substance: CANAKINUMAB
     Indication: PRODUCT USED FOR UNKNOWN INDICATION
     Dosage: UNK
     Route: 065

REACTIONS (13)
  - Pyrexia [Unknown]
  - Product dose omission issue [Unknown]
  - Weight decreased [Unknown]
  - Pain [Unknown]
  - Inflammation [Unknown]
  - Incorrect route of product administration [Unknown]
  - Drug ineffective [Unknown]
  - Condition aggravated [Unknown]
  - Injection site pain [Unknown]
  - Myalgia [Unknown]
  - Arthralgia [Unknown]
  - Alopecia [Unknown]
  - Drug hypersensitivity [Unknown]

NARRATIVE: CASE EVENT DATE: 20200807
